FAERS Safety Report 9389010 (Version 2)
Quarter: 2013Q4

REPORT INFORMATION
  Report Type: Spontaneous
  Country: US (occurrence: US)
  Receive Date: 20130708
  Receipt Date: 20131015
  Transmission Date: 20140711
  Serious: Yes (Death, Other)
  Sender: FDA-Public Use
  Company Number: US-GILEAD-2013-0078530

PATIENT
  Sex: Male

DRUGS (2)
  1. CAYSTON [Suspect]
     Indication: CYSTIC FIBROSIS LUNG
     Dosage: 75 MG, UNK
     Route: 055
     Dates: end: 2012
  2. CAYSTON [Suspect]
     Indication: PSEUDOMONAS INFECTION

REACTIONS (1)
  - Cardiopulmonary failure [Fatal]
